FAERS Safety Report 7132750-0 (Version None)
Quarter: 2010Q4

REPORT INFORMATION
  Report Type: 
  Country: None (occurrence: None)
  Receive Date: 20101202
  Receipt Date: 20101122
  Transmission Date: 20110411
  Serious: No
  Sender: FDA-Public Use
  Company Number: US-PFIZER INC-2010155189

PATIENT
  Sex: Female
  Weight: 79 kg

DRUGS (3)
  1. PREMARIN [Suspect]
     Indication: BLOOD OESTROGEN ABNORMAL
     Dosage: 0.625 MG, DAILY
     Route: 048
     Dates: start: 20101027
  2. PRISTIQ [Concomitant]
     Dosage: UNK
  3. HYDROCODONE [Concomitant]
     Indication: TENDONITIS
     Dosage: UNK

REACTIONS (1)
  - ABDOMINAL DISCOMFORT [None]
